FAERS Safety Report 12235547 (Version 2)
Quarter: 2016Q2

REPORT INFORMATION
  Report Type: Spontaneous
  Country: US (occurrence: US)
  Receive Date: 20160404
  Receipt Date: 20160426
  Transmission Date: 20160815
  Serious: No
  Sender: FDA-Public Use
  Company Number: US-MDT-ADR-2016-00621

PATIENT
  Age: 77 Year
  Sex: Male
  Weight: 91 kg

DRUGS (14)
  1. FISH OIL [Suspect]
     Active Substance: FISH OIL
  2. HYDROCHLOROTHIAZIDE. [Suspect]
     Active Substance: HYDROCHLOROTHIAZIDE
     Dosage: 12.5 MG  1/DAY
     Route: 048
  3. BACLOFEN. [Suspect]
     Active Substance: BACLOFEN
     Dosage: 91.14 MCG/DAY
     Route: 037
     Dates: start: 20160324
  4. BACTRIM [Suspect]
     Active Substance: SULFAMETHOXAZOLE\TRIMETHOPRIM
  5. MULTI VITAMIN [Suspect]
     Active Substance: VITAMINS
  6. CRANBERRY. [Suspect]
     Active Substance: CRANBERRY
  7. ASPIRIN. [Suspect]
     Active Substance: ASPIRIN
  8. LISINOPRIL. [Suspect]
     Active Substance: LISINOPRIL
     Dosage: 10 MG 1/DAY
     Route: 048
  9. PROBIOTIC [Suspect]
     Active Substance: PROBIOTICS NOS
  10. THERACAL D2000 [Suspect]
     Active Substance: MINERALS\VITAMINS
  11. TAMSULOSIN [Suspect]
     Active Substance: TAMSULOSIN
  12. BICALUTAMIDE. [Suspect]
     Active Substance: BICALUTAMIDE
  13. BACLOFEN. [Suspect]
     Active Substance: BACLOFEN
  14. TRAMADOL. [Suspect]
     Active Substance: TRAMADOL
     Dosage: 50 MG/DAY

REACTIONS (7)
  - Urinary incontinence [Unknown]
  - Viral infection [None]
  - Malaise [Unknown]
  - Nausea [Unknown]
  - Retching [Unknown]
  - Performance status decreased [Unknown]
  - Somnolence [Unknown]
